FAERS Safety Report 21595971 (Version 1)
Quarter: 2022Q4

REPORT INFORMATION
  Report Type: Report from Study
  Country: US (occurrence: US)
  Receive Date: 20221115
  Receipt Date: 20221115
  Transmission Date: 20230113
  Serious: No
  Sender: FDA-Public Use
  Company Number: US-ABBVIE-22K-163-4521379-00

PATIENT
  Sex: Female

DRUGS (3)
  1. SKYRIZI [Suspect]
     Active Substance: RISANKIZUMAB-RZAA
     Indication: Psoriasis
     Dosage: STRENGTH 150 MG.?WEEK 0
     Route: 058
     Dates: start: 20220807, end: 20220807
  2. SKYRIZI [Suspect]
     Active Substance: RISANKIZUMAB-RZAA
     Dosage: STRENGTH 150 MG.?WEEK 4 THEN EVERY 12 WEEKS THEREAFTER
     Route: 058
     Dates: start: 2022
  3. EXCEDRIN MIGRAINE [Concomitant]
     Active Substance: ACETAMINOPHEN\ASPIRIN\CAFFEINE
     Indication: Product used for unknown indication
     Route: 065

REACTIONS (5)
  - Needle issue [Unknown]
  - Incorrect dose administered [Unknown]
  - Nasal congestion [Not Recovered/Not Resolved]
  - Device issue [Unknown]
  - Headache [Unknown]

NARRATIVE: CASE EVENT DATE: 20220101
